FAERS Safety Report 22076451 (Version 9)
Quarter: 2023Q2

REPORT INFORMATION
  Report Type: Spontaneous
  Country: CA (occurrence: CA)
  Receive Date: 20230309
  Receipt Date: 20230509
  Transmission Date: 20230722
  Serious: Yes (Hospitalization, Other)
  Sender: FDA-Public Use
  Company Number: CA-CELLTRION INC.-2022CA019773

PATIENT

DRUGS (8)
  1. INFLECTRA [Suspect]
     Active Substance: INFLIXIMAB-DYYB
     Indication: Colitis ulcerative
     Dosage: 1DF,WEEK 0 - HOSPITAL STARTED
     Route: 042
     Dates: start: 20221031, end: 20221031
  2. INFLECTRA [Suspect]
     Active Substance: INFLIXIMAB-DYYB
     Dosage: 5 MG/KG WEEK 2, 6 THEN EVERY (Q) 6 WEEKS
     Route: 042
     Dates: start: 20221117, end: 20230207
  3. INFLECTRA [Suspect]
     Active Substance: INFLIXIMAB-DYYB
     Dosage: 5 MG/KG ,WEEK 2,6 THEN Q 6 WEEKS
     Route: 042
     Dates: start: 20221213
  4. INFLECTRA [Suspect]
     Active Substance: INFLIXIMAB-DYYB
     Dosage: 340 MG (5 MG/KG) ON W2, W6 THEN Q 6 WEEKS
     Route: 042
     Dates: start: 20230207
  5. INFLECTRA [Suspect]
     Active Substance: INFLIXIMAB-DYYB
     Dosage: 10 MG/KG REINDUCTION: WEEK 0 RECEIVED IN THE HOSPITAL 0, THEN WEEK 2, WEEK 6, THEN EVERY 8 WEEKS
     Route: 042
     Dates: start: 20230302, end: 20230427
  6. INFLECTRA [Suspect]
     Active Substance: INFLIXIMAB-DYYB
     Dosage: 670MG (10MG/KG), WEEK 2 REINDUCTION DOSE
     Route: 042
     Dates: start: 20230317
  7. INFLECTRA [Suspect]
     Active Substance: INFLIXIMAB-DYYB
     Dosage: 610 MG  4 WEEKS (RE-INDUCTION W6)
     Route: 042
     Dates: start: 20230414, end: 20230414
  8. PREDNISONE [Concomitant]
     Active Substance: PREDNISONE
     Dosage: UNK

REACTIONS (13)
  - Haematochezia [Unknown]
  - Abdominal pain [Unknown]
  - Ear infection [Unknown]
  - Oropharyngeal pain [Unknown]
  - Drug ineffective [Unknown]
  - Drug level decreased [Unknown]
  - Off label use [Unknown]
  - Inappropriate schedule of product administration [Unknown]
  - Illness [Unknown]
  - Bronchitis [Not Recovered/Not Resolved]
  - Condition aggravated [Recovering/Resolving]
  - Weight decreased [Unknown]
  - Acne [Unknown]

NARRATIVE: CASE EVENT DATE: 20221117
